FAERS Safety Report 17073327 (Version 2)
Quarter: 2022Q2

REPORT INFORMATION
  Report Type: Spontaneous
  Country: IT (occurrence: IT)
  Receive Date: 20191126
  Receipt Date: 20220418
  Transmission Date: 20220721
  Serious: Yes (Other)
  Sender: FDA-Public Use
  Company Number: IT-PFIZER INC-2019468878

PATIENT
  Age: 68 Year
  Sex: Male

DRUGS (12)
  1. VORICONAZOLE [Suspect]
     Active Substance: VORICONAZOLE
     Indication: Evidence based treatment
     Dosage: 400 MILLIGRAM, ONCE A DAY (WAS ADJUSTED FROM 300 MG TO 200 MG)
     Route: 048
     Dates: start: 201701
  2. VORICONAZOLE [Suspect]
     Active Substance: VORICONAZOLE
     Indication: Antifungal treatment
     Dosage: 8 MILLIGRAM/KILOGRAM, ONCE A DAY (4 MG/KG, 2X/DAY (4 MG/KG (300 MG) EVERY 12 HOURS)
     Route: 048
     Dates: start: 201701
  3. VORICONAZOLE [Suspect]
     Active Substance: VORICONAZOLE
     Dosage: 12 MILLIGRAM/KILOGRAM, ONCE A DAY (LOADING DOSE 6 MG/KG (400 MG) EVERY 12 HOUR FOR TWO DOSES)
     Route: 048
     Dates: start: 201701
  4. ALLOPURINOL [Concomitant]
     Active Substance: ALLOPURINOL
     Indication: Product used for unknown indication
     Dosage: UNK
     Route: 065
  5. ALFUZOSIN [Concomitant]
     Active Substance: ALFUZOSIN
     Indication: Product used for unknown indication
     Dosage: UNK
     Route: 065
  6. AMIODARONE [Concomitant]
     Active Substance: AMIODARONE
     Indication: Product used for unknown indication
     Dosage: UNK
     Route: 065
  7. FUROSEMIDE [Concomitant]
     Active Substance: FUROSEMIDE
     Indication: Product used for unknown indication
     Dosage: UNK
     Route: 065
  8. MYCOPHENOLATE MOFETIL [Concomitant]
     Active Substance: MYCOPHENOLATE MOFETIL
     Indication: Product used for unknown indication
     Dosage: UNK
     Route: 065
  9. PREDNISOLONE [Concomitant]
     Active Substance: PREDNISOLONE
     Indication: Product used for unknown indication
     Dosage: UNK
     Route: 065
  10. RANITIDINE [Concomitant]
     Active Substance: RANITIDINE
     Indication: Product used for unknown indication
     Dosage: UNK
     Route: 065
  11. TACROLIMUS [Concomitant]
     Active Substance: TACROLIMUS
     Indication: Immunosuppressant drug therapy
     Dosage: 0.5 MILLIGRAM
     Route: 065
  12. WARFARIN [Concomitant]
     Active Substance: WARFARIN
     Indication: Product used for unknown indication
     Dosage: UNK
     Route: 065

REACTIONS (5)
  - Confusional state [Unknown]
  - Dizziness [Unknown]
  - Eye irritation [Unknown]
  - Hallucination [Unknown]
  - Drug ineffective [Recovered/Resolved]

NARRATIVE: CASE EVENT DATE: 20170101
